FAERS Safety Report 5751641-0 (Version None)
Quarter: 2008Q2

REPORT INFORMATION
  Report Type: 
  Country: None (occurrence: None)
  Receive Date: 20080528
  Receipt Date: 20080521
  Transmission Date: 20081010
  Serious: Yes (Other)
  Sender: FDA-Public Use
  Company Number: PHHY2008BR08489

PATIENT
  Age: 25 Year
  Sex: Female
  Weight: 70 kg

DRUGS (1)
  1. ZELMAC [Suspect]
     Indication: CONSTIPATION
     Route: 048

REACTIONS (3)
  - COLITIS ISCHAEMIC [None]
  - COLONOSCOPY [None]
  - SYNCOPE [None]
